FAERS Safety Report 4730002-7 (Version None)
Quarter: 2005Q3

REPORT INFORMATION
  Report Type: 
  Country: None (occurrence: None)
  Receive Date: 20050728
  Receipt Date: 20050608
  Transmission Date: 20060218
  Serious: Yes (Hospitalization)
  Sender: FDA-Public Use
  Company Number: S04-GER-08106-01

PATIENT
  Age: 80 Year
  Sex: Male

DRUGS (1)
  1. CIPRALEX (ESCITALOPRAM) [Suspect]
     Dates: start: 20030101, end: 20041101

REACTIONS (1)
  - APLASTIC ANAEMIA [None]
